FAERS Safety Report 5753623-1 (Version None)
Quarter: 2008Q2

REPORT INFORMATION
  Report Type: 
  Country: None (occurrence: None)
  Receive Date: 20080530
  Receipt Date: 20080520
  Transmission Date: 20081010
  Serious: Yes (Other)
  Sender: FDA-Public Use
  Company Number: US-JNJFOC-20080504576

PATIENT
  Age: 62 Year
  Sex: Male

DRUGS (3)
  1. REMICADE [Suspect]
     Indication: RHEUMATOID ARTHRITIS
     Dosage: ^9 VIALS EVERY 8 WEEKS^
     Route: 042
  2. METHOTREXATE [Concomitant]
  3. PROSTATE MEDICATION [Concomitant]
     Indication: PROSTATOMEGALY

REACTIONS (1)
  - SUICIDAL IDEATION [None]
